FAERS Safety Report 19349948 (Version 1)
Quarter: 2021Q2

REPORT INFORMATION
  Report Type: Spontaneous
  Country: US (occurrence: US)
  Receive Date: 20210531
  Receipt Date: 20210531
  Transmission Date: 20210717
  Serious: No
  Sender: FDA-Public Use
  Company Number: US-ORGANON-1806USA009169

PATIENT
  Age: 69 Year
  Sex: Female

DRUGS (4)
  1. ASMANEX HFA [Suspect]
     Active Substance: MOMETASONE FUROATE
     Dosage: 200 MICROGRAM, UNK
  2. ASMANEX HFA [Suspect]
     Active Substance: MOMETASONE FUROATE
     Dosage: UNK
  3. ASMANEX HFA [Suspect]
     Active Substance: MOMETASONE FUROATE
     Dosage: UNK
  4. ASMANEX HFA [Suspect]
     Active Substance: MOMETASONE FUROATE
     Dosage: 1 PUFF TWICE DAILY (BID)

REACTIONS (7)
  - Product dose omission issue [Unknown]
  - Poor quality product administered [Unknown]
  - Product quality issue [Unknown]
  - Product quality issue [Unknown]
  - Incorrect dose administered [Unknown]
  - Dyspnoea [Recovered/Resolved]
  - Wrong technique in product usage process [Unknown]

NARRATIVE: CASE EVENT DATE: 20210517
